FAERS Safety Report 6907905-8 (Version None)
Quarter: 2010Q3

REPORT INFORMATION
  Report Type: 
  Country: None (occurrence: None)
  Receive Date: 20100805
  Receipt Date: 20100726
  Transmission Date: 20110219
  Serious: Yes (Other)
  Sender: FDA-Public Use
  Company Number: PHFR2010GB00568

PATIENT
  Sex: Male

DRUGS (2)
  1. TEGRETOL [Suspect]
     Dosage: 400 MG, BID
     Route: 048
  2. ALCOHOL [Suspect]
     Route: 048

REACTIONS (2)
  - ALCOHOL INTERACTION [None]
  - CONVULSION [None]
